FAERS Safety Report 8791191 (Version 1)
Quarter: 2012Q4

REPORT INFORMATION
  Report Type: Spontaneous
  Country: DE (occurrence: None)
  Receive Date: 20120911
  Receipt Date: 20120911
  Transmission Date: 20130627
  Serious: Yes (Hospitalization, Other)
  Sender: FDA-Public Use
  Company Number: EU-2012-10205

PATIENT
  Sex: Male
  Weight: 54 kg

DRUGS (63)
  1. SAMSCA (TOLVAPTAN) TABLET [Suspect]
     Indication: HYPONATREMIA
     Route: 048
     Dates: start: 20120222, end: 20120222
  2. SAMSCA (TOLVAPTAN) TABLET [Suspect]
     Indication: SIADH
     Route: 048
     Dates: start: 20120222, end: 20120222
  3. SAMSCA (TOLVAPTAN) TABLET [Suspect]
     Indication: COPD
     Route: 048
     Dates: start: 20120222, end: 20120222
  4. SAMSCA (TOLVAPTAN) TABLET [Suspect]
     Indication: OROPHARYNGEAL NEOPLASM
     Route: 048
     Dates: start: 20120222, end: 20120222
  5. SAMSCA (TOLVAPTAN) TABLET [Suspect]
     Indication: VOCAL CORD NEOPLASM
     Route: 048
     Dates: start: 20120222, end: 20120222
  6. SAMSCA (TOLVAPTAN) TABLET [Suspect]
     Indication: HYPONATREMIA
     Route: 048
     Dates: start: 20120224, end: 20120224
  7. SAMSCA (TOLVAPTAN) TABLET [Suspect]
     Indication: SIADH
     Route: 048
     Dates: start: 20120224, end: 20120224
  8. SAMSCA (TOLVAPTAN) TABLET [Suspect]
     Indication: COPD
     Route: 048
     Dates: start: 20120224, end: 20120224
  9. SAMSCA (TOLVAPTAN) TABLET [Suspect]
     Indication: OROPHARYNGEAL NEOPLASM
     Route: 048
     Dates: start: 20120224, end: 20120224
  10. SAMSCA (TOLVAPTAN) TABLET [Suspect]
     Indication: VOCAL CORD NEOPLASM
     Route: 048
     Dates: start: 20120224, end: 20120224
  11. SAMSCA (TOLVAPTAN) TABLET [Suspect]
     Indication: HYPONATREMIA
     Route: 048
     Dates: start: 20120227, end: 20120402
  12. SAMSCA (TOLVAPTAN) TABLET [Suspect]
     Indication: SIADH
     Route: 048
     Dates: start: 20120227, end: 20120402
  13. SAMSCA (TOLVAPTAN) TABLET [Suspect]
     Indication: COPD
     Route: 048
     Dates: start: 20120227, end: 20120402
  14. SAMSCA (TOLVAPTAN) TABLET [Suspect]
     Indication: OROPHARYNGEAL NEOPLASM
     Route: 048
     Dates: start: 20120227, end: 20120402
  15. SAMSCA (TOLVAPTAN) TABLET [Suspect]
     Indication: VOCAL CORD NEOPLASM
     Route: 048
     Dates: start: 20120227, end: 20120402
  16. SAMSCA (TOLVAPTAN) TABLET [Suspect]
     Indication: HYPONATREMIA
     Route: 048
     Dates: start: 20120402, end: 20120410
  17. SAMSCA (TOLVAPTAN) TABLET [Suspect]
     Indication: SIADH
     Route: 048
     Dates: start: 20120402, end: 20120410
  18. SAMSCA (TOLVAPTAN) TABLET [Suspect]
     Indication: COPD
     Route: 048
     Dates: start: 20120402, end: 20120410
  19. SAMSCA (TOLVAPTAN) TABLET [Suspect]
     Indication: OROPHARYNGEAL NEOPLASM
     Route: 048
     Dates: start: 20120402, end: 20120410
  20. SAMSCA (TOLVAPTAN) TABLET [Suspect]
     Indication: VOCAL CORD NEOPLASM
     Route: 048
     Dates: start: 20120402, end: 20120410
  21. SAMSCA (TOLVAPTAN) TABLET [Suspect]
     Indication: HYPONATREMIA
     Route: 048
     Dates: start: 20120411, end: 20120412
  22. SAMSCA (TOLVAPTAN) TABLET [Suspect]
     Indication: SIADH
     Route: 048
     Dates: start: 20120411, end: 20120412
  23. SAMSCA (TOLVAPTAN) TABLET [Suspect]
     Indication: COPD
     Route: 048
     Dates: start: 20120411, end: 20120412
  24. SAMSCA (TOLVAPTAN) TABLET [Suspect]
     Indication: OROPHARYNGEAL NEOPLASM
     Route: 048
     Dates: start: 20120411, end: 20120412
  25. SAMSCA (TOLVAPTAN) TABLET [Suspect]
     Indication: VOCAL CORD NEOPLASM
     Route: 048
     Dates: start: 20120411, end: 20120412
  26. SAMSCA (TOLVAPTAN) TABLET [Suspect]
     Indication: HYPONATREMIA
     Route: 048
     Dates: start: 20120413, end: 20120416
  27. SAMSCA (TOLVAPTAN) TABLET [Suspect]
     Indication: SIADH
     Route: 048
     Dates: start: 20120413, end: 20120416
  28. SAMSCA (TOLVAPTAN) TABLET [Suspect]
     Indication: COPD
     Route: 048
     Dates: start: 20120413, end: 20120416
  29. SAMSCA (TOLVAPTAN) TABLET [Suspect]
     Indication: OROPHARYNGEAL NEOPLASM
     Route: 048
     Dates: start: 20120413, end: 20120416
  30. SAMSCA (TOLVAPTAN) TABLET [Suspect]
     Indication: VOCAL CORD NEOPLASM
     Route: 048
     Dates: start: 20120413, end: 20120416
  31. SAMSCA (TOLVAPTAN) TABLET [Suspect]
     Indication: HYPONATREMIA
     Route: 048
     Dates: start: 20120417, end: 20120524
  32. SAMSCA (TOLVAPTAN) TABLET [Suspect]
     Indication: SIADH
     Route: 048
     Dates: start: 20120417, end: 20120524
  33. SAMSCA (TOLVAPTAN) TABLET [Suspect]
     Indication: COPD
     Route: 048
     Dates: start: 20120417, end: 20120524
  34. SAMSCA (TOLVAPTAN) TABLET [Suspect]
     Indication: OROPHARYNGEAL NEOPLASM
     Route: 048
     Dates: start: 20120417, end: 20120524
  35. SAMSCA (TOLVAPTAN) TABLET [Suspect]
     Indication: VOCAL CORD NEOPLASM
     Route: 048
     Dates: start: 20120417, end: 20120524
  36. SAMSCA (TOLVAPTAN) TABLET [Suspect]
     Indication: HYPONATREMIA
     Route: 048
     Dates: start: 20120525, end: 20120529
  37. SAMSCA (TOLVAPTAN) TABLET [Suspect]
     Indication: SIADH
     Route: 048
     Dates: start: 20120525, end: 20120529
  38. SAMSCA (TOLVAPTAN) TABLET [Suspect]
     Indication: COPD
     Route: 048
     Dates: start: 20120525, end: 20120529
  39. SAMSCA (TOLVAPTAN) TABLET [Suspect]
     Indication: OROPHARYNGEAL NEOPLASM
     Route: 048
     Dates: start: 20120525, end: 20120529
  40. SAMSCA (TOLVAPTAN) TABLET [Suspect]
     Indication: VOCAL CORD NEOPLASM
     Route: 048
     Dates: start: 20120525, end: 20120529
  41. SAMSCA (TOLVAPTAN) TABLET [Suspect]
     Indication: HYPONATREMIA
     Route: 048
     Dates: start: 20120530, end: 20120613
  42. SAMSCA (TOLVAPTAN) TABLET [Suspect]
     Indication: SIADH
     Route: 048
     Dates: start: 20120530, end: 20120613
  43. SAMSCA (TOLVAPTAN) TABLET [Suspect]
     Indication: COPD
     Route: 048
     Dates: start: 20120530, end: 20120613
  44. SAMSCA (TOLVAPTAN) TABLET [Suspect]
     Indication: OROPHARYNGEAL NEOPLASM
     Route: 048
     Dates: start: 20120530, end: 20120613
  45. SAMSCA (TOLVAPTAN) TABLET [Suspect]
     Indication: VOCAL CORD NEOPLASM
     Route: 048
     Dates: start: 20120530, end: 20120613
  46. SAMSCA (TOLVAPTAN) TABLET [Suspect]
     Indication: HYPONATREMIA
     Route: 048
     Dates: start: 20120614
  47. SAMSCA (TOLVAPTAN) TABLET [Suspect]
     Indication: SIADH
     Route: 048
     Dates: start: 20120614
  48. SAMSCA (TOLVAPTAN) TABLET [Suspect]
     Indication: COPD
     Route: 048
     Dates: start: 20120614
  49. SAMSCA (TOLVAPTAN) TABLET [Suspect]
     Indication: OROPHARYNGEAL NEOPLASM
     Route: 048
     Dates: start: 20120614
  50. SAMSCA (TOLVAPTAN) TABLET [Suspect]
     Indication: VOCAL CORD NEOPLASM
     Route: 048
     Dates: start: 20120614
  51. PANTOPRAZOLE (PANTOPRAZOLE) 09/05/2011 TO ONGOING [Concomitant]
  52. BISOPROLOL (BISOPROLOL) 09/04/2011 TO 06/-/2012 [Concomitant]
  53. BISOPROLOL (BISOPROLOL) 06/-/2012 TO ONGOING [Concomitant]
  54. ASS (ACETYLSALICYLIC ACID) 06/10/2012 TO ONGOING [Concomitant]
  55. IDEOS (CALCIUM CARBONATE, COLECALCIFEROL) TABLET 06/-/2011 TO ONGOING [Concomitant]
  56. TORASEMIDE (TORASEMIDE) 04/02/2012 TO 05/29/2012 [Concomitant]
  57. TORASEMIDE (TORASEMIDE) 07/15/2012 TO ONGOING [Concomitant]
  58. DUROGESIC (FENTANYL) 05/-/2006 TO ONGOING [Concomitant]
  59. SPIRIVA (TIOTROPIUM BROMIDE) 09/10/2011 TO ONGOING [Concomitant]
  60. OXIS (FORMOTEROL FUMARATE) 06/-/2011 TO ONGOING [Concomitant]
  61. ENOXAPARIN (ENOXAPARIN) 06/08/2012 TO 06/23/2012 [Concomitant]
  62. ENOXAPARIN (ENOXAPARIN) 06/24/12 TO 06/28/12 [Concomitant]
  63. ASS (ACETYLSALICYLIC ACID) [Concomitant]

REACTIONS (13)
  - Pneumonia [None]
  - Blood sodium decreased [None]
  - Sepsis [None]
  - Muscle spasms [None]
  - Hypothyroidism [None]
  - White blood cell count increased [None]
  - Chest pain [None]
  - Chronic obstructive pulmonary disease [None]
  - Tachycardia [None]
  - Hyperkalaemia [None]
  - Constipation [None]
  - Wrong technique in drug usage process [None]
  - Incorrect drug administration rate [None]
